FAERS Safety Report 4528802-1 (Version None)
Quarter: 2004Q4

REPORT INFORMATION
  Report Type: 
  Country: None (occurrence: None)
  Receive Date: 20041216
  Receipt Date: 20030605
  Transmission Date: 20050328
  Serious: Yes (Hospitalization)
  Sender: FDA-Public Use
  Company Number: US-GLAXOSMITHKLINE-A0411641A

PATIENT
  Age: 47 Year
  Sex: Female
  Weight: 102.3 kg

DRUGS (5)
  1. LOTRONEX [Suspect]
     Indication: IRRITABLE BOWEL SYNDROME
     Dosage: 1MG PER DAY
     Route: 048
     Dates: start: 20000606, end: 20010130
  2. TRAZODONE HCL [Concomitant]
  3. TYLENOL PM [Concomitant]
  4. PONSTEL [Concomitant]
  5. FIORINAL [Concomitant]

REACTIONS (3)
  - COLONIC STENOSIS [None]
  - DIVERTICULUM [None]
  - ENDOMETRIOSIS [None]
